FAERS Safety Report 7341812-4 (Version None)
Quarter: 2011Q1

REPORT INFORMATION
  Report Type: 
  Country: None (occurrence: None)
  Receive Date: 20110309
  Receipt Date: 20110304
  Transmission Date: 20110831
  Serious: Yes (Death, Life-Threatening, Hospitalization)
  Sender: FDA-Public Use
  Company Number: JP-CEPHALON-2011000817

PATIENT
  Sex: Female
  Weight: 50 kg

DRUGS (8)
  1. BENDAMUSTINE HCL [Suspect]
     Indication: B-CELL LYMPHOMA
     Route: 041
     Dates: start: 20110106, end: 20110107
  2. FLAVIN ADENINE DINUCLEOTIDE [Concomitant]
     Dates: end: 20110212
  3. GRANISETRON HYDROCHLORIDE [Concomitant]
     Dates: start: 20110106, end: 20110107
  4. ACYCLOVIR [Concomitant]
     Dates: end: 20110212
  5. DEXAMETHASONE SODIUM PHOSPHATE [Concomitant]
     Dates: start: 20110106, end: 20110214
  6. FAMOTIDINE [Concomitant]
     Dates: end: 20110212
  7. ALLOPURINOL [Concomitant]
     Dates: start: 20110105, end: 20110109
  8. SULFAMETHOXAZOLE WITH TRIMETHOPRIM [Concomitant]
     Dates: end: 20110212

REACTIONS (4)
  - PNEUMONIA [None]
  - PLATELET COUNT DECREASED [None]
  - NEUTROPHIL COUNT DECREASED [None]
  - ANAEMIA [None]
